FAERS Safety Report 8494435-8 (Version None)
Quarter: 2012Q3

REPORT INFORMATION
  Report Type: 
  Country: None (occurrence: None)
  Receive Date: 20120709
  Receipt Date: 20120627
  Transmission Date: 20120928
  Serious: Yes (Other)
  Sender: FDA-Public Use
  Company Number: US-US-EMD SERONO, INC.-7144175

PATIENT
  Sex: Female

DRUGS (2)
  1. REBIF [Suspect]
     Indication: MULTIPLE SCLEROSIS
     Route: 058
     Dates: start: 20110127, end: 20120501
  2. REBIF [Suspect]
     Route: 058
     Dates: start: 20120501, end: 20120601

REACTIONS (2)
  - CHOLELITHIASIS [None]
  - MULTIPLE SCLEROSIS [None]
